FAERS Safety Report 6589840-0 (Version None)
Quarter: 2010Q1

REPORT INFORMATION
  Report Type: 
  Country: None (occurrence: None)
  Receive Date: 20100219
  Receipt Date: 20100217
  Transmission Date: 20100710
  Serious: Yes (Death)
  Sender: FDA-Public Use
  Company Number: GB-WYE-G05464010

PATIENT
  Sex: Male
  Weight: 85 kg

DRUGS (10)
  1. GEMTUZUMAB OZOGAMICIN [Suspect]
     Indication: ACUTE MYELOID LEUKAEMIA
     Route: 042
     Dates: start: 20091120, end: 20091120
  2. METHYLPREDNISOLONE [Concomitant]
     Dosage: 50 MG EVERY 1 TOT
     Route: 042
     Dates: start: 20091120, end: 20091120
  3. CHLORPHENIRAMINE MALEATE [Concomitant]
     Dosage: 10 MG EVERY 1 TOT
     Route: 042
     Dates: start: 20091120, end: 20091120
  4. CLOFARABINE [Concomitant]
     Route: 042
     Dates: start: 20091117, end: 20091121
  5. CLOFARABINE [Concomitant]
     Route: 042
     Dates: start: 20091214, end: 20091218
  6. DAUNORUBICIN HCL [Concomitant]
     Route: 042
     Dates: start: 20091117, end: 20091117
  7. DAUNORUBICIN HCL [Concomitant]
     Route: 042
     Dates: start: 20091119, end: 20091119
  8. DAUNORUBICIN HCL [Concomitant]
     Route: 042
     Dates: start: 20091216, end: 20091216
  9. DAUNORUBICIN HCL [Concomitant]
     Route: 042
     Dates: start: 20091218, end: 20091218
  10. DAUNORUBICIN HCL [Concomitant]
     Route: 042
     Dates: start: 20091121, end: 20091121

REACTIONS (2)
  - NEUTROPENIC SEPSIS [None]
  - PNEUMONIA [None]
